FAERS Safety Report 7282357-X (Version None)
Quarter: 2011Q1

REPORT INFORMATION
  Report Type: 
  Country: None (occurrence: None)
  Receive Date: 20110209
  Receipt Date: 20110126
  Transmission Date: 20110831
  Serious: Yes (Hospitalization, Other)
  Sender: FDA-Public Use
  Company Number: US-RANBAXY-2010RR-40737

PATIENT
  Sex: Female

DRUGS (4)
  1. LEVAQUIN [Suspect]
  2. CIPROFLOXACIN [Suspect]
     Dosage: 500 MG, UNK
     Dates: start: 20090603, end: 20090603
  3. LEVAQUIN [Suspect]
     Indication: PNEUMONIA
     Dosage: UNK
     Route: 048
     Dates: start: 20090101, end: 20090114
  4. CIPROFLOXACIN [Suspect]
     Indication: PRODUCT USED FOR UNKNOWN INDICATION
     Dosage: 250 MG, UNK
     Dates: start: 20081219, end: 20081219

REACTIONS (1)
  - ROTATOR CUFF SYNDROME [None]
